FAERS Safety Report 23263571 (Version 1)
Quarter: 2023Q4

REPORT INFORMATION
  Report Type: Spontaneous
  Country: US (occurrence: None)
  Receive Date: 20231205
  Receipt Date: 20231205
  Transmission Date: 20240109
  Serious: Yes (Death, Other)
  Sender: FDA-Public Use
  Company Number: 2023A273366

PATIENT
  Age: 80 Year
  Sex: Female

DRUGS (2)
  1. FARXIGA [Suspect]
     Active Substance: DAPAGLIFLOZIN PROPANEDIOL
     Indication: Diuretic therapy
     Route: 048
  2. ENTRESTO [Concomitant]
     Active Substance: SACUBITRIL\VALSARTAN
     Indication: Diuretic therapy

REACTIONS (6)
  - Fall [Fatal]
  - Fracture [Fatal]
  - Hypovolaemia [Unknown]
  - Dehydration [Unknown]
  - Decreased appetite [Unknown]
  - Illness [Unknown]
